FAERS Safety Report 17508297 (Version 1)
Quarter: 2020Q1

REPORT INFORMATION
  Report Type: Spontaneous
  Country: US (occurrence: US)
  Receive Date: 20200225
  Receipt Date: 20200225
  Transmission Date: 20200409
  Serious: No
  Sender: FDA-Public Use
  Company Number: None

PATIENT
  Age: 53 Year
  Sex: Male

DRUGS (9)
  1. DRONABINOL. [Concomitant]
     Active Substance: DRONABINOL
  2. AZITHROMYCIN ANHYDROUS. [Concomitant]
     Active Substance: AZITHROMYCIN ANHYDROUS
  3. LORAZEPAM. [Concomitant]
     Active Substance: LORAZEPAM
  4. PROMEHAZINE [Concomitant]
  5. LIDE/PRILOCN [Concomitant]
  6. CAPECITABINE 500MG MG [Suspect]
     Active Substance: CAPECITABINE
     Indication: COLON CANCER
     Dates: start: 20200123
  7. DIPHEN/ATROP [Concomitant]
     Active Substance: ATROPINE SULFATE\DIPHENOXYLATE
  8. NYSLATIN [Concomitant]
  9. ONDANSETRON [Concomitant]
     Active Substance: ONDANSETRON

REACTIONS (1)
  - Hospitalisation [None]

NARRATIVE: CASE EVENT DATE: 20200210
